FAERS Safety Report 10676698 (Version 1)
Quarter: 2014Q4

REPORT INFORMATION
  Report Type: Spontaneous
  Country: US (occurrence: US)
  Receive Date: 20141226
  Receipt Date: 20141226
  Transmission Date: 20150529
  Serious: No
  Sender: FDA-Public Use
  Company Number: US-BAYER-2014-187950

PATIENT
  Age: 86 Year
  Sex: Female

DRUGS (2)
  1. STIVARGA [Suspect]
     Active Substance: REGORAFENIB
     Indication: COLON CANCER
  2. STIVARGA [Suspect]
     Active Substance: REGORAFENIB
     Indication: APPENDIX CANCER
     Dosage: 120 MG (3 PILLS A DAY, ON 3 WEEKS, OFF 1 WEEK)
     Route: 048

REACTIONS (4)
  - Skin warm [None]
  - Erythema [None]
  - Pain in extremity [None]
  - Rash macular [None]

NARRATIVE: CASE EVENT DATE: 20141217
